FAERS Safety Report 11087109 (Version 1)
Quarter: 2015Q2

REPORT INFORMATION
  Report Type: Spontaneous
  Country: US (occurrence: US)
  Receive Date: 20150504
  Receipt Date: 20150504
  Transmission Date: 20150821
  Serious: Yes (Hospitalization, Other)
  Sender: FDA-Public Use
  Company Number: US-ASTELLAS-2015US014225

PATIENT
  Age: 58 Year
  Sex: Male

DRUGS (7)
  1. FLUCYTOSINE. [Suspect]
     Active Substance: FLUCYTOSINE
     Indication: CRYPTOCOCCOSIS
     Dosage: UNK, UNKNOWN FREQ.
     Route: 065
     Dates: start: 201501, end: 201501
  2. FLUCYTOSINE. [Suspect]
     Active Substance: FLUCYTOSINE
     Dosage: UNK, UNKNOWN FREQ.
     Route: 065
     Dates: start: 20150224
  3. IBRUTINIB [Suspect]
     Active Substance: IBRUTINIB
     Indication: CHRONIC LYMPHOCYTIC LEUKAEMIA
     Dosage: UNK, UNKNOWN FREQ.
     Route: 065
     Dates: start: 201404, end: 20150120
  4. KEPPRA [Concomitant]
     Active Substance: LEVETIRACETAM
     Indication: PRODUCT USED FOR UNKNOWN INDICATION
     Dosage: UNK UNK, UNKNOWN FREQ.
     Route: 065
     Dates: start: 20150120
  5. ACYCLOVIR                          /00587301/ [Concomitant]
     Active Substance: ACYCLOVIR
     Indication: PRODUCT USED FOR UNKNOWN INDICATION
     Dosage: UNK UNK, UNKNOWN FREQ.
     Route: 065
  6. DIFLUCAN [Concomitant]
     Active Substance: FLUCONAZOLE
     Indication: PRODUCT USED FOR UNKNOWN INDICATION
     Dosage: UNK UNK, UNKNOWN FREQ.
     Route: 065
     Dates: start: 20150120
  7. AMBISOME [Suspect]
     Active Substance: AMPHOTERICIN B
     Indication: CRYPTOCOCCOSIS
     Dosage: UNK, UNKNOWN FREQ.
     Route: 065
     Dates: start: 201501, end: 201501

REACTIONS (8)
  - Fatigue [Not Recovered/Not Resolved]
  - Malnutrition [Recovering/Resolving]
  - CD4 lymphocytes decreased [Recovering/Resolving]
  - Hypertension [Recovered/Resolved]
  - Hypogammaglobulinaemia [Unknown]
  - Headache [Not Recovered/Not Resolved]
  - Acute kidney injury [Recovering/Resolving]
  - Vomiting [Unknown]
